FAERS Safety Report 5042844-1 (Version None)
Quarter: 2006Q3

REPORT INFORMATION
  Report Type: 
  Country: None (occurrence: None)
  Receive Date: 20060705
  Receipt Date: 20060623
  Transmission Date: 20061208
  Serious: Yes (Life-Threatening, Hospitalization)
  Sender: FDA-Public Use
  Company Number: FR-GLAXOSMITHKLINE-B0379351C

PATIENT
  Age: 32 Year
  Sex: Female

DRUGS (3)
  1. EPIVIR [Suspect]
     Indication: HIV INFECTION
     Dosage: 300MG PER DAY
     Route: 048
     Dates: start: 20030104
  2. KALETRA [Suspect]
     Indication: HIV INFECTION
     Dosage: 3CAP TWICE PER DAY
     Route: 048
     Dates: start: 20030104
  3. ZERIT [Suspect]
     Indication: HIV INFECTION
     Dosage: 40MG TWICE PER DAY
     Route: 048
     Dates: start: 20030104

REACTIONS (12)
  - BLOOD CREATININE INCREASED [None]
  - BLOOD UREA INCREASED [None]
  - C-REACTIVE PROTEIN INCREASED [None]
  - CHILLS [None]
  - CONJUNCTIVITIS [None]
  - GAMMA-GLUTAMYLTRANSFERASE INCREASED [None]
  - LUNG DISORDER [None]
  - NASOPHARYNGITIS [None]
  - PYREXIA [None]
  - RALES [None]
  - RENAL FAILURE [None]
  - RHINORRHOEA [None]
